FAERS Safety Report 8967261 (Version 1)
Quarter: 2012Q4

REPORT INFORMATION
  Report Type: 
  Country: US (occurrence: US)
  Receive Date: 20121214
  Receipt Date: 20121214
  Transmission Date: 20130627
  Serious: No
  Sender: FDA-Public Use
  Company Number: US-GLAXOSMITHKLINE-A0974197A

PATIENT
  Age: 65 Year
  Sex: Male

DRUGS (12)
  1. FLONASE [Suspect]
     Indication: NASAL CONGESTION
     Dosage: 1SPR Twice per day
     Route: 045
     Dates: start: 2011
  2. ASPIRIN [Concomitant]
  3. LANTUS [Concomitant]
  4. PLAVIX [Concomitant]
  5. LISINOPRIL [Concomitant]
  6. LIPITOR [Concomitant]
  7. NOVOLOG [Concomitant]
  8. COREG [Concomitant]
  9. NEURONTIN [Concomitant]
  10. NYSTATIN [Concomitant]
  11. VITAMIN D [Concomitant]
  12. DICLOFENAC SODIUM [Concomitant]

REACTIONS (1)
  - Drug ineffective [Recovered/Resolved]
